FAERS Safety Report 25979189 (Version 1)
Quarter: 2025Q4

REPORT INFORMATION
  Report Type: Spontaneous
  Country: GB (occurrence: GB)
  Receive Date: 20251030
  Receipt Date: 20251030
  Transmission Date: 20260118
  Serious: Yes (Other)
  Sender: MYLAN
  Company Number: GB-MHRA-37448792

PATIENT
  Age: 54 Year
  Sex: Female
  Weight: 73 kg

DRUGS (40)
  1. APIXABAN [Suspect]
     Active Substance: APIXABAN
     Indication: Deep vein thrombosis
     Dosage: 2.5 MILLIGRAM
     Dates: start: 20050623, end: 20251003
  2. APIXABAN [Suspect]
     Active Substance: APIXABAN
     Dosage: 2.5 MILLIGRAM
     Route: 048
     Dates: start: 20050623, end: 20251003
  3. APIXABAN [Suspect]
     Active Substance: APIXABAN
     Dosage: 2.5 MILLIGRAM
     Route: 048
     Dates: start: 20050623, end: 20251003
  4. APIXABAN [Suspect]
     Active Substance: APIXABAN
     Dosage: 2.5 MILLIGRAM
     Dates: start: 20050623, end: 20251003
  5. SERTRALINE [Concomitant]
     Active Substance: SERTRALINE HYDROCHLORIDE
     Dosage: 100 MILLIGRAM, QD (100MG OD)
     Dates: start: 20160115
  6. SERTRALINE [Concomitant]
     Active Substance: SERTRALINE HYDROCHLORIDE
     Dosage: 100 MILLIGRAM, QD (100MG OD)
     Route: 065
     Dates: start: 20160115
  7. SERTRALINE [Concomitant]
     Active Substance: SERTRALINE HYDROCHLORIDE
     Dosage: 100 MILLIGRAM, QD (100MG OD)
     Route: 065
     Dates: start: 20160115
  8. SERTRALINE [Concomitant]
     Active Substance: SERTRALINE HYDROCHLORIDE
     Dosage: 100 MILLIGRAM, QD (100MG OD)
     Dates: start: 20160115
  9. DULOXETINE [Concomitant]
     Active Substance: DULOXETINE
     Dosage: 30 MILLIGRAM, BID (30 MG BD)
     Dates: start: 20220718
  10. DULOXETINE [Concomitant]
     Active Substance: DULOXETINE
     Dosage: 30 MILLIGRAM, BID (30 MG BD)
     Route: 065
     Dates: start: 20220718
  11. DULOXETINE [Concomitant]
     Active Substance: DULOXETINE
     Dosage: 30 MILLIGRAM, BID (30 MG BD)
     Route: 065
     Dates: start: 20220718
  12. DULOXETINE [Concomitant]
     Active Substance: DULOXETINE
     Dosage: 30 MILLIGRAM, BID (30 MG BD)
     Dates: start: 20220718
  13. OMEPRAZOLE [Concomitant]
     Active Substance: OMEPRAZOLE
     Dosage: 40 MILLIGRAM, QD (40 MG OD)
     Dates: start: 20080707
  14. OMEPRAZOLE [Concomitant]
     Active Substance: OMEPRAZOLE
     Dosage: 40 MILLIGRAM, QD (40 MG OD)
     Route: 065
     Dates: start: 20080707
  15. OMEPRAZOLE [Concomitant]
     Active Substance: OMEPRAZOLE
     Dosage: 40 MILLIGRAM, QD (40 MG OD)
     Route: 065
     Dates: start: 20080707
  16. OMEPRAZOLE [Concomitant]
     Active Substance: OMEPRAZOLE
     Dosage: 40 MILLIGRAM, QD (40 MG OD)
     Dates: start: 20080707
  17. PREGABALIN [Concomitant]
     Active Substance: PREGABALIN
     Dosage: 300 MILLIGRAM, BID (300 MG BD)
     Dates: start: 20170912
  18. PREGABALIN [Concomitant]
     Active Substance: PREGABALIN
     Dosage: 300 MILLIGRAM, BID (300 MG BD)
     Route: 065
     Dates: start: 20170912
  19. PREGABALIN [Concomitant]
     Active Substance: PREGABALIN
     Dosage: 300 MILLIGRAM, BID (300 MG BD)
     Route: 065
     Dates: start: 20170912
  20. PREGABALIN [Concomitant]
     Active Substance: PREGABALIN
     Dosage: 300 MILLIGRAM, BID (300 MG BD)
     Dates: start: 20170912
  21. MORPHINE SULFATE [Concomitant]
     Active Substance: MORPHINE SULFATE
     Dosage: 80 MILLIGRAM, BID (80 MG BD)
     Dates: start: 20180926
  22. MORPHINE SULFATE [Concomitant]
     Active Substance: MORPHINE SULFATE
     Dosage: 80 MILLIGRAM, BID (80 MG BD)
     Route: 065
     Dates: start: 20180926
  23. MORPHINE SULFATE [Concomitant]
     Active Substance: MORPHINE SULFATE
     Dosage: 80 MILLIGRAM, BID (80 MG BD)
     Route: 065
     Dates: start: 20180926
  24. MORPHINE SULFATE [Concomitant]
     Active Substance: MORPHINE SULFATE
     Dosage: 80 MILLIGRAM, BID (80 MG BD)
     Dates: start: 20180926
  25. DIAZEPAM [Concomitant]
     Active Substance: DIAZEPAM
     Dosage: 2 MILLIGRAM, TID (2 MG TDS)
     Dates: start: 20240414
  26. DIAZEPAM [Concomitant]
     Active Substance: DIAZEPAM
     Dosage: 2 MILLIGRAM, TID (2 MG TDS)
     Route: 065
     Dates: start: 20240414
  27. DIAZEPAM [Concomitant]
     Active Substance: DIAZEPAM
     Dosage: 2 MILLIGRAM, TID (2 MG TDS)
     Route: 065
     Dates: start: 20240414
  28. DIAZEPAM [Concomitant]
     Active Substance: DIAZEPAM
     Dosage: 2 MILLIGRAM, TID (2 MG TDS)
     Dates: start: 20240414
  29. NORTRIPTYLINE [Concomitant]
     Active Substance: NORTRIPTYLINE
     Dosage: 10 MILLIGRAM, PM (10 MG NOCTE)
     Dates: start: 20241126
  30. NORTRIPTYLINE [Concomitant]
     Active Substance: NORTRIPTYLINE
     Dosage: 10 MILLIGRAM, PM (10 MG NOCTE)
     Route: 065
     Dates: start: 20241126
  31. NORTRIPTYLINE [Concomitant]
     Active Substance: NORTRIPTYLINE
     Dosage: 10 MILLIGRAM, PM (10 MG NOCTE)
     Route: 065
     Dates: start: 20241126
  32. NORTRIPTYLINE [Concomitant]
     Active Substance: NORTRIPTYLINE
     Dosage: 10 MILLIGRAM, PM (10 MG NOCTE)
     Dates: start: 20241126
  33. PROPRANOLOL [Concomitant]
     Active Substance: PROPRANOLOL HYDROCHLORIDE
     Dosage: 80 MILLIGRAM, QD (80 MG OD MR)
     Dates: start: 20240404
  34. PROPRANOLOL [Concomitant]
     Active Substance: PROPRANOLOL HYDROCHLORIDE
     Dosage: 80 MILLIGRAM, QD (80 MG OD MR)
     Route: 065
     Dates: start: 20240404
  35. PROPRANOLOL [Concomitant]
     Active Substance: PROPRANOLOL HYDROCHLORIDE
     Dosage: 80 MILLIGRAM, QD (80 MG OD MR)
     Route: 065
     Dates: start: 20240404
  36. PROPRANOLOL [Concomitant]
     Active Substance: PROPRANOLOL HYDROCHLORIDE
     Dosage: 80 MILLIGRAM, QD (80 MG OD MR)
     Dates: start: 20240404
  37. FERROUS SULFATE [Concomitant]
     Active Substance: FERROUS SULFATE
     Dosage: 200 MILLIGRAM, QD (200 MG OD)
     Dates: start: 20250730
  38. FERROUS SULFATE [Concomitant]
     Active Substance: FERROUS SULFATE
     Dosage: 200 MILLIGRAM, QD (200 MG OD)
     Route: 065
     Dates: start: 20250730
  39. FERROUS SULFATE [Concomitant]
     Active Substance: FERROUS SULFATE
     Dosage: 200 MILLIGRAM, QD (200 MG OD)
     Route: 065
     Dates: start: 20250730
  40. FERROUS SULFATE [Concomitant]
     Active Substance: FERROUS SULFATE
     Dosage: 200 MILLIGRAM, QD (200 MG OD)
     Dates: start: 20250730

REACTIONS (1)
  - Deep vein thrombosis [Recovering/Resolving]

NARRATIVE: CASE EVENT DATE: 20251001
